FAERS Safety Report 5425909-1 (Version None)
Quarter: 2007Q3

REPORT INFORMATION
  Report Type: 
  Country: None (occurrence: None)
  Receive Date: 20070823
  Receipt Date: 20070823
  Transmission Date: 20080115
  Serious: Yes (Hospitalization)
  Sender: FDA-Public Use
  Company Number: None

PATIENT
  Sex: Female
  Weight: 62 kg

DRUGS (2)
  1. CARBOPLATIN [Suspect]
     Dosage: 594 MG
     Dates: end: 20070808
  2. TAXOL [Suspect]
     Dosage: 287 MG
     Dates: end: 20070808

REACTIONS (7)
  - ABDOMINAL ADHESIONS [None]
  - ACTIVITIES OF DAILY LIVING IMPAIRED [None]
  - CONSTIPATION [None]
  - HAEMATOMA [None]
  - ORAL INTAKE REDUCED [None]
  - SMALL INTESTINAL OBSTRUCTION [None]
  - URINARY TRACT INFECTION ENTEROCOCCAL [None]
